FAERS Safety Report 21583286 (Version 4)
Quarter: 2023Q1

REPORT INFORMATION
  Report Type: Report from Study
  Country: FR (occurrence: FR)
  Receive Date: 20221111
  Receipt Date: 20230126
  Transmission Date: 20230417
  Serious: Yes (Hospitalization)
  Sender: FDA-Public Use
  Company Number: FR-GLAXOSMITHKLINE-FR2022131504

PATIENT

DRUGS (16)
  1. DOSTARLIMAB [Suspect]
     Active Substance: DOSTARLIMAB
     Indication: Non-small cell lung cancer
     Dosage: DOSE AT CYCLE 1 - DAY 1
     Route: 042
     Dates: start: 20220222, end: 20220222
  2. DOSTARLIMAB [Suspect]
     Active Substance: DOSTARLIMAB
     Dosage: DOSE AT DAY 1
     Route: 042
     Dates: start: 20220315, end: 20220315
  3. DOSTARLIMAB [Suspect]
     Active Substance: DOSTARLIMAB
     Dosage: DOSE AT DAY 1
     Route: 042
     Dates: start: 20220405, end: 20220405
  4. DOSTARLIMAB [Suspect]
     Active Substance: DOSTARLIMAB
     Dosage: DOSE AT DAY 1
     Route: 042
     Dates: start: 20220603, end: 20220603
  5. DOSTARLIMAB [Suspect]
     Active Substance: DOSTARLIMAB
     Dosage: DOSE AT DAY 1
     Route: 042
     Dates: start: 20220624, end: 20220624
  6. DOSTARLIMAB [Suspect]
     Active Substance: DOSTARLIMAB
     Dosage: DOSE AT DAY 1
     Route: 042
     Dates: start: 20220715, end: 20220715
  7. DOSTARLIMAB [Suspect]
     Active Substance: DOSTARLIMAB
     Dosage: DOSE AT DAY 1
     Route: 042
     Dates: start: 20220805, end: 20220805
  8. DOSTARLIMAB [Suspect]
     Active Substance: DOSTARLIMAB
     Dosage: DOSE AT DAY 1
     Route: 042
     Dates: start: 20220826, end: 20220826
  9. DOCETAXEL [Suspect]
     Active Substance: DOCETAXEL
     Indication: Non-small cell lung cancer
     Dosage: DOSE AT CYCLE 1 - DAY 1
     Route: 042
     Dates: start: 20220222, end: 20220222
  10. DOCETAXEL [Suspect]
     Active Substance: DOCETAXEL
     Dosage: DOSE AT DAY 1
     Route: 042
     Dates: start: 20220315, end: 20220315
  11. DOCETAXEL [Suspect]
     Active Substance: DOCETAXEL
     Dosage: DOSE AT DAY 1
     Route: 042
     Dates: start: 20220405, end: 20220405
  12. DOCETAXEL [Suspect]
     Active Substance: DOCETAXEL
     Dosage: DOSE AT DAY 1
     Route: 042
     Dates: start: 20220603, end: 20220603
  13. DOCETAXEL [Suspect]
     Active Substance: DOCETAXEL
     Dosage: DOSE AT DAY 1
     Route: 042
     Dates: start: 20220624, end: 20220624
  14. DOCETAXEL [Suspect]
     Active Substance: DOCETAXEL
     Dosage: DOSE AT DAY 1
     Route: 042
     Dates: start: 20220715, end: 20220715
  15. DOCETAXEL [Suspect]
     Active Substance: DOCETAXEL
     Dosage: DOSE AT DAY 1
     Route: 042
     Dates: start: 20220805, end: 20220805
  16. DOCETAXEL [Suspect]
     Active Substance: DOCETAXEL
     Dosage: DOSE AT DAY 1
     Route: 042
     Dates: start: 20220826, end: 20220826

REACTIONS (1)
  - Pleurisy [Recovered/Resolved]

NARRATIVE: CASE EVENT DATE: 20220908
